FAERS Safety Report 17921852 (Version 2)
Quarter: 2020Q2

REPORT INFORMATION
  Report Type: Spontaneous
  Country: TH (occurrence: TH)
  Receive Date: 20200622
  Receipt Date: 20200629
  Transmission Date: 20200714
  Serious: Yes (Hospitalization)
  Sender: FDA-Public Use
  Company Number: TH-BAUSCH-BL-2020-017341

PATIENT
  Age: 30 Year
  Sex: Female

DRUGS (4)
  1. CODEINE PHOSPHATE [Concomitant]
     Active Substance: CODEINE PHOSPHATE
     Indication: PHARYNGITIS
  2. CLINDAMYCIN. [Suspect]
     Active Substance: CLINDAMYCIN
     Indication: PHARYNGITIS
     Dosage: TOTAL OF 5 DOSES
     Route: 065
  3. GUAIFENESIN. [Concomitant]
     Active Substance: GUAIFENESIN
     Indication: PHARYNGITIS
  4. PARACETAMOL [Concomitant]
     Active Substance: ACETAMINOPHEN
     Indication: PHARYNGITIS

REACTIONS (1)
  - Acute generalised exanthematous pustulosis [Recovered/Resolved]
